FAERS Safety Report 9292849 (Version 2)
Quarter: 2013Q2

REPORT INFORMATION
  Report Type: Spontaneous
  Country: US (occurrence: US)
  Receive Date: 20130516
  Receipt Date: 20130523
  Transmission Date: 20140414
  Serious: Yes (Hospitalization)
  Sender: FDA-Public Use
  Company Number: US-ACTELION-A-NJ2013-83185

PATIENT
  Age: 63 Year
  Sex: Female

DRUGS (3)
  1. TRACLEER [Suspect]
     Indication: PULMONARY ARTERIAL HYPERTENSION
     Dosage: UNK
     Route: 048
     Dates: start: 2008
  2. VENTAVIS [Suspect]
     Indication: PULMONARY ARTERIAL HYPERTENSION
     Dosage: 5 TIMES A DAY
     Route: 055
     Dates: start: 2011
  3. SILDENAFIL [Concomitant]

REACTIONS (6)
  - Gastrooesophageal reflux disease [Recovering/Resolving]
  - Diverticulitis [Recovering/Resolving]
  - Gastrointestinal haemorrhage [Recovering/Resolving]
  - Haemoglobin decreased [Recovering/Resolving]
  - Polyp [Recovered/Resolved]
  - Polypectomy [Recovered/Resolved]
